FAERS Safety Report 14785229 (Version 2)
Quarter: 2018Q3

REPORT INFORMATION
  Report Type: Spontaneous
  Country: NL (occurrence: NL)
  Receive Date: 20180420
  Receipt Date: 20180726
  Transmission Date: 20181010
  Serious: Yes (Other)
  Sender: FDA-Public Use
  Company Number: NL-TEVA-2018-NL-885146

PATIENT
  Age: 38 Year
  Sex: Female
  Weight: 63 kg

DRUGS (8)
  1. EUTHYROX TABLET 100MCG [Concomitant]
     Dates: start: 20160903
  2. LAMOTRIGINE TABLET, 100 MG (MILLIGRAM) [Suspect]
     Active Substance: LAMOTRIGINE
     Route: 065
     Dates: start: 20170803, end: 20170921
  3. MOMETASON TEVA NEUSSPRA [Concomitant]
     Dates: start: 20160903
  4. DESLORATADINE ACTAVIS 5 MG [Concomitant]
     Dates: start: 20160903
  5. LAMOTRIGINE TABLET, 100 MG (MILLIGRAM) [Suspect]
     Active Substance: LAMOTRIGINE
     Dates: start: 20170922
  6. SUMATRIPTAN AUROBINDO TABLET 50MG [Concomitant]
     Dates: start: 20160903
  7. OMEPAZOL CAPS TEVA MSR 20MG [Concomitant]
     Dates: start: 20160903
  8. EUTHYROX TABLET 125MCG [Concomitant]
     Dates: start: 20160903

REACTIONS (2)
  - Headache [Unknown]
  - Joint stiffness [Unknown]

NARRATIVE: CASE EVENT DATE: 20170922
